FAERS Safety Report 24814897 (Version 5)
Quarter: 2025Q1

REPORT INFORMATION
  Report Type: Spontaneous
  Country: JP (occurrence: JP)
  Receive Date: 20250107
  Receipt Date: 20250220
  Transmission Date: 20250408
  Serious: Yes (Death, Hospitalization, Other)
  Sender: ELI LILLY AND COMPANY
  Company Number: JP-ELI_LILLY_AND_COMPANY-JP202412018289

PATIENT
  Age: 90 Year
  Sex: Female
  Weight: 33.2 kg

DRUGS (13)
  1. MOUNJARO [Suspect]
     Active Substance: TIRZEPATIDE
     Indication: Type 2 diabetes mellitus
     Dosage: 2.5 MG, WEEKLY (1/W)
     Route: 058
     Dates: start: 20241018, end: 20241025
  2. MOUNJARO [Suspect]
     Active Substance: TIRZEPATIDE
     Indication: Type 2 diabetes mellitus
     Dosage: 2.5 MG, WEEKLY (1/W)
     Route: 058
     Dates: start: 20241018, end: 20241025
  3. MOUNJARO [Suspect]
     Active Substance: TIRZEPATIDE
     Indication: Type 2 diabetes mellitus
     Dosage: 2.5 MG, WEEKLY (1/W)
     Route: 058
     Dates: start: 20241018, end: 20241025
  4. MOUNJARO [Suspect]
     Active Substance: TIRZEPATIDE
     Indication: Type 2 diabetes mellitus
     Dosage: 2.5 MG, WEEKLY (1/W)
     Route: 058
     Dates: start: 20241018, end: 20241025
  5. DAPAGLIFLOZIN [Suspect]
     Active Substance: DAPAGLIFLOZIN
     Indication: Type 2 diabetes mellitus
     Route: 065
     Dates: start: 20241018
  6. CARBAZOCHROME SODIUM SULFONATE [Concomitant]
     Active Substance: CARBAZOCHROME SODIUM SULFONATE
     Indication: Subdural haematoma
     Route: 048
     Dates: start: 20241011, end: 20241206
  7. TRANEXAMIC ACID [Concomitant]
     Active Substance: TRANEXAMIC ACID
     Indication: Subdural haematoma
     Route: 048
     Dates: start: 20241011, end: 20241206
  8. GOREISAN [ALISMA PLANTAGO-AQUATICA SUBSP. ORI [Concomitant]
     Indication: Subdural haematoma
     Route: 048
     Dates: start: 20241011
  9. AMITIZA [Concomitant]
     Active Substance: LUBIPROSTONE
  10. AZUNOL #1 [Concomitant]
  11. AZOSEMIDE [Concomitant]
     Active Substance: AZOSEMIDE
  12. SPIRONOLACTONE [Concomitant]
     Active Substance: SPIRONOLACTONE
     Indication: Hypokalaemia
     Route: 048
     Dates: start: 20241203, end: 20241213
  13. LEVOTHYROXINE SODIUM [Concomitant]
     Active Substance: LEVOTHYROXINE SODIUM
     Indication: Hypothyroidism
     Route: 048
     Dates: start: 20241206, end: 20241213

REACTIONS (18)
  - Hepatic function abnormal [Fatal]
  - Marasmus [Fatal]
  - Malnutrition [Fatal]
  - Hypoalbuminaemia [Fatal]
  - Pleural effusion [Fatal]
  - General physical health deterioration [Fatal]
  - Hypoglycaemia [Recovered/Resolved]
  - Blood pressure decreased [Unknown]
  - Dehydration [Unknown]
  - Renal impairment [Unknown]
  - Hypophagia [Unknown]
  - Ascites [Unknown]
  - Pericardial effusion [Unknown]
  - Hepatic mass [Not Recovered/Not Resolved]
  - Renal cyst [Not Recovered/Not Resolved]
  - Pyelocaliectasis [Not Recovered/Not Resolved]
  - Gallbladder enlargement [Not Recovered/Not Resolved]
  - Diarrhoea [Unknown]

NARRATIVE: CASE EVENT DATE: 20241130
